FAERS Safety Report 11024784 (Version 1)
Quarter: 2015Q2

REPORT INFORMATION
  Report Type: Spontaneous
  Country: US (occurrence: None)
  Receive Date: 20150413
  Receipt Date: 20150413
  Transmission Date: 20150821
  Serious: Yes (Other)
  Sender: FDA-Public Use
  Company Number: None

PATIENT
  Age: 33 Year
  Sex: Female
  Weight: 65.32 kg

DRUGS (2)
  1. NUVARING [Concomitant]
     Active Substance: ETHINYL ESTRADIOL\ETONOGESTREL
  2. BROMOCRIPTINE MESYLATE [Suspect]
     Active Substance: BROMOCRIPTINE MESYLATE
     Indication: LACTATION DISORDER
     Route: 048
     Dates: start: 20150402, end: 20150402

REACTIONS (3)
  - Tremor [None]
  - Dizziness [None]
  - Vomiting [None]

NARRATIVE: CASE EVENT DATE: 20150402
